FAERS Safety Report 9047097 (Version 1)
Quarter: 2013Q1

REPORT INFORMATION
  Report Type: Spontaneous
  Country: BR (occurrence: BR)
  Receive Date: 20130130
  Receipt Date: 20130130
  Transmission Date: 20140127
  Serious: Yes (Death, Hospitalization, Other)
  Sender: FDA-Public Use
  Company Number: BR-PFIZER INC-2013036618

PATIENT
  Age: 86 Year
  Sex: Male

DRUGS (1)
  1. DETRUSITOL LA [Suspect]
     Dosage: 4 MG, UNK
     Route: 048

REACTIONS (3)
  - Infarction [Fatal]
  - Arrhythmia [Unknown]
  - Dementia Alzheimer^s type [Unknown]
